FAERS Safety Report 15564120 (Version 1)
Quarter: 2018Q4

REPORT INFORMATION
  Report Type: Spontaneous
  Country: JP (occurrence: JP)
  Receive Date: 20181030
  Receipt Date: 20181030
  Transmission Date: 20190205
  Serious: Yes (Other)
  Sender: FDA-Public Use
  Company Number: JP-ROCHE-2205505

PATIENT
  Age: 68 Year
  Sex: Male

DRUGS (23)
  1. LUCENTIS [Suspect]
     Active Substance: RANIBIZUMAB
     Indication: DIABETIC RETINAL OEDEMA
     Dosage: 0.05 ML, UNK
     Route: 031
     Dates: start: 20140527
  2. LUCENTIS [Suspect]
     Active Substance: RANIBIZUMAB
     Dosage: 0.05 ML, UNK
     Route: 031
  3. EYLEA [Concomitant]
     Active Substance: AFLIBERCEPT
     Dosage: 0.05 ML, UNK
     Route: 047
  4. EYLEA [Concomitant]
     Active Substance: AFLIBERCEPT
     Dosage: 0.05 ML, UNK
     Route: 047
  5. LUCENTIS [Suspect]
     Active Substance: RANIBIZUMAB
     Dosage: 0.05 ML, UNK
     Route: 031
  6. LUCENTIS [Suspect]
     Active Substance: RANIBIZUMAB
     Dosage: 0.05 ML, UNK
     Route: 031
  7. EYLEA [Concomitant]
     Active Substance: AFLIBERCEPT
     Dosage: 0.05 ML, UNK
     Route: 047
  8. EYLEA [Concomitant]
     Active Substance: AFLIBERCEPT
     Dosage: 0.05 ML, UNK
     Route: 047
  9. EYLEA [Concomitant]
     Active Substance: AFLIBERCEPT
     Dosage: 0.05 ML, UNK
     Route: 047
  10. EYLEA [Concomitant]
     Active Substance: AFLIBERCEPT
     Dosage: 0.05 ML, UNK
     Route: 047
  11. EYLEA [Concomitant]
     Active Substance: AFLIBERCEPT
     Dosage: 0.05 ML, UNK
     Route: 047
  12. EYLEA [Concomitant]
     Active Substance: AFLIBERCEPT
     Dosage: 0.05 ML, UNK
     Route: 047
     Dates: start: 20170105, end: 20170105
  13. LUCENTIS [Suspect]
     Active Substance: RANIBIZUMAB
     Dosage: 0.05 ML, UNK
     Route: 031
  14. EYLEA [Concomitant]
     Active Substance: AFLIBERCEPT
     Indication: DIABETIC RETINAL OEDEMA
     Dosage: 0.05 ML, UNK
     Route: 047
     Dates: start: 20141021
  15. LUCENTIS [Suspect]
     Active Substance: RANIBIZUMAB
     Dosage: 0.05 ML, UNK
     Route: 031
  16. LUCENTIS [Suspect]
     Active Substance: RANIBIZUMAB
     Dosage: 0.05 ML, UNK
     Route: 031
  17. EYLEA [Concomitant]
     Active Substance: AFLIBERCEPT
     Dosage: 0.05 ML, UNK
     Route: 047
  18. LUCENTIS [Suspect]
     Active Substance: RANIBIZUMAB
     Dosage: 0.05 ML, UNK
     Route: 031
  19. EYLEA [Concomitant]
     Active Substance: AFLIBERCEPT
     Dosage: 0.05 ML, UNK
     Route: 047
  20. LUCENTIS [Suspect]
     Active Substance: RANIBIZUMAB
     Dosage: 0.05 ML, UNK
     Route: 031
     Dates: start: 20170831, end: 20170831
  21. LUCENTIS [Suspect]
     Active Substance: RANIBIZUMAB
     Dosage: 0.05 ML, UNK
     Route: 031
  22. LUCENTIS [Suspect]
     Active Substance: RANIBIZUMAB
     Dosage: 0.05 ML, UNK
     Route: 031
  23. EYLEA [Concomitant]
     Active Substance: AFLIBERCEPT
     Dosage: 0.05 ML, UNK
     Route: 047

REACTIONS (5)
  - Diabetic retinal oedema [Unknown]
  - Therapeutic response decreased [Unknown]
  - Disease progression [Unknown]
  - Visual acuity reduced [Recovered/Resolved]
  - Visual acuity reduced [Unknown]

NARRATIVE: CASE EVENT DATE: 20151001
